FAERS Safety Report 4965705-2 (Version None)
Quarter: 2006Q1

REPORT INFORMATION
  Report Type: 
  Country: None (occurrence: None)
  Receive Date: 20060331
  Receipt Date: 20060316
  Transmission Date: 20060701
  Serious: Yes (Other)
  Sender: FDA-Public Use
  Company Number: AU200603005686

PATIENT
  Age: 61 Year
  Sex: Female

DRUGS (9)
  1. FORTEO [Suspect]
     Indication: OSTEOPOROSIS
     Dosage: 20 UG
  2. FORTEO [Concomitant]
  3. PREDNISOLONE [Concomitant]
  4. ADALIMUMAB [Concomitant]
  5. CALCIUM GLUCONATE [Concomitant]
  6. VITAMIN D [Concomitant]
  7. PANADEINE FORTE (CODEINE PHOSPHATE, PARACETAMOL) [Concomitant]
  8. GLUCOSAMINE [Concomitant]
  9. OXYCODONE [Concomitant]

REACTIONS (1)
  - ARTHRITIS BACTERIAL [None]
